FAERS Safety Report 6015216-0 (Version None)
Quarter: 2008Q4

REPORT INFORMATION
  Report Type: 
  Country: None (occurrence: None)
  Receive Date: 20081219
  Receipt Date: 20081219
  Transmission Date: 20090506
  Serious: Yes (Disabling)
  Sender: FDA-Public Use
  Company Number: None

PATIENT
  Age: 1 Day
  Sex: Male
  Weight: 1.5 kg

DRUGS (3)
  1. PHYTONADIONE [Suspect]
     Indication: HAEMORRHAGE
     Dosage: 1MG ONCE IM
     Route: 030
     Dates: start: 20081212, end: 20081212
  2. PHYTONADIONE [Suspect]
     Indication: PROPHYLAXIS
     Dosage: 1MG ONCE IM
     Route: 030
     Dates: start: 20081212, end: 20081212
  3. PHYTONADIONE [Suspect]
     Indication: VITAMIN K DEFICIENCY
     Dosage: 1MG ONCE IM
     Route: 030
     Dates: start: 20081212, end: 20081212

REACTIONS (2)
  - DEVICE BREAKAGE [None]
  - MEDICATION ERROR [None]
